FAERS Safety Report 23052309 (Version 2)
Quarter: 2023Q4

REPORT INFORMATION
  Report Type: Report from Study
  Country: CA (occurrence: CA)
  Receive Date: 20231010
  Receipt Date: 20231101
  Transmission Date: 20240109
  Serious: Yes (Hospitalization)
  Sender: FDA-Public Use
  Company Number: CA-ABBVIE-5443253

PATIENT
  Age: 21 Year
  Sex: Female

DRUGS (1)
  1. SKYRIZI [Suspect]
     Active Substance: RISANKIZUMAB-RZAA
     Indication: Product used for unknown indication
     Route: 058
     Dates: start: 20230615, end: 20230907

REACTIONS (4)
  - Clostridium difficile infection [Not Recovered/Not Resolved]
  - Fistula discharge [Unknown]
  - Frustration tolerance decreased [Unknown]
  - Inflammation [Unknown]

NARRATIVE: CASE EVENT DATE: 20230929
